FAERS Safety Report 8797019 (Version 1)
Quarter: 2012Q4

REPORT INFORMATION
  Report Type: 
  Country: NZ (occurrence: NZ)
  Receive Date: 20120920
  Receipt Date: 20120920
  Transmission Date: 20130627
  Serious: Yes (Other)
  Sender: FDA-Public Use
  Company Number: NZ-ASTELLAS-2012US007943

PATIENT
  Age: 65 Year
  Sex: Female

DRUGS (4)
  1. TARCEVA [Suspect]
     Indication: NON-SMALL CELL LUNG CANCER
     Dosage: 150 mg, UID/QD
     Route: 048
     Dates: start: 201202, end: 201203
  2. TARCEVA [Suspect]
     Dosage: 150 mg alternating with 100 mg, qod
     Route: 048
     Dates: start: 201203, end: 201206
  3. TARCEVA [Suspect]
     Dosage: 150 mg alternating with 100 mg, qod
     Route: 048
  4. TARCEVA [Suspect]
     Dosage: 50 mg alternating with 100 mg, qod
     Route: 048

REACTIONS (3)
  - Visual impairment [Unknown]
  - Skin disorder [Not Recovered/Not Resolved]
  - Skin exfoliation [Not Recovered/Not Resolved]
